FAERS Safety Report 9693568 (Version 2)
Quarter: 2013Q4

REPORT INFORMATION
  Report Type: Spontaneous
  Country: AU (occurrence: AU)
  Receive Date: 20131118
  Receipt Date: 20131118
  Transmission Date: 20140711
  Serious: Yes (Hospitalization, Other)
  Sender: FDA-Public Use
  Company Number: AU-ABBVIE-08P-008-0493186-00

PATIENT
  Age: 32 Year
  Sex: Male

DRUGS (4)
  1. EPILIM [Suspect]
     Indication: EPILEPSY
     Route: 048
     Dates: end: 200811
  2. EPILIM [Suspect]
     Route: 048
     Dates: start: 200811
  3. ENTECAVIR [Suspect]
     Indication: HEPATITIS B
     Route: 048
  4. INVESTIGATIONAL DRUG [Concomitant]
     Indication: PRODUCT USED FOR UNKNOWN INDICATION
     Dates: start: 20070312

REACTIONS (9)
  - Status epilepticus [Recovered/Resolved]
  - Choking [Recovered/Resolved]
  - Aspiration [Recovered/Resolved]
  - Convulsion [Recovered/Resolved]
  - Transaminases increased [Unknown]
  - Lipase increased [Unknown]
  - Liver function test abnormal [Unknown]
  - Pyrexia [Recovered/Resolved]
  - Drug ineffective [Unknown]
